FAERS Safety Report 20161513 (Version 3)
Quarter: 2022Q1

REPORT INFORMATION
  Report Type: Spontaneous
  Country: AU (occurrence: AU)
  Receive Date: 20211208
  Receipt Date: 20220221
  Transmission Date: 20220423
  Serious: Yes (Other)
  Sender: FDA-Public Use
  Company Number: AU-MYLANLABS-2021M1090358

PATIENT
  Age: 35 Year
  Sex: Female
  Weight: 82 kg

DRUGS (16)
  1. CLOZARIL [Suspect]
     Active Substance: CLOZAPINE
     Indication: Schizophrenia
     Dosage: UNK
     Route: 048
     Dates: start: 20050509
  2. CLOZARIL [Suspect]
     Active Substance: CLOZAPINE
     Dosage: 200 MILLIGRAM NOCTE
  3. APIXABAN [Concomitant]
     Active Substance: APIXABAN
     Dosage: 5 MILLIGRAM, BID
  4. DOCUSATE [Concomitant]
     Active Substance: DOCUSATE
     Dosage: 100 MILLIGRAM, BID
  5. MOVICOL [Concomitant]
     Active Substance: POLYETHYLENE GLYCOL 3350\POTASSIUM CHLORIDE\SODIUM BICARBONATE\SODIUM CHLORIDE
     Dosage: 2 SACHETS, BID
  6. METAMUCIL [Concomitant]
     Active Substance: PLANTAGO SEED
     Dosage: 1 TEASPOON MIDDAY
  7. TERBINAFINE [Concomitant]
     Active Substance: TERBINAFINE
     Dosage: 250 MILLIGRAM, AM
  8. BACLOFEN [Concomitant]
     Active Substance: BACLOFEN
     Dosage: 25 MILLIGRAM, TID
  9. SENNA [Concomitant]
     Active Substance: SENNA LEAF\SENNOSIDES\SENNOSIDES A AND B
     Dosage: 2 DOSAGE FORM, BID
  10. BISACODYL [Concomitant]
     Active Substance: BISACODYL
     Dosage: 10 MILLIGRAM, AM
  11. CHOLECALCIFEROL [Concomitant]
     Active Substance: CHOLECALCIFEROL
     Dosage: 2000 UNITS MANE
  12. ASCORBIC ACID [Concomitant]
     Active Substance: ASCORBIC ACID
     Dosage: 500 MILLIGRAM, AM
  13. GLYCERIN [Concomitant]
     Active Substance: GLYCERIN
     Dosage: 2.8 GRAM, AM
  14. PERINDOPRIL [Concomitant]
     Active Substance: PERINDOPRIL
     Dosage: 5 MILLIGRAM, AM
  15. Methylsalicylate [Concomitant]
     Dosage: APPLY TO MID BACK NOCTE
  16. AMLODIPINE [Concomitant]
     Active Substance: AMLODIPINE BESYLATE
     Dosage: 10 MILLIGRAM, AM

REACTIONS (3)
  - Myocarditis [Unknown]
  - White blood cell count increased [Unknown]
  - Neutrophil count increased [Unknown]

NARRATIVE: CASE EVENT DATE: 20220211
